FAERS Safety Report 22533620 (Version 1)
Quarter: 2023Q2

REPORT INFORMATION
  Report Type: Spontaneous
  Country: None (occurrence: US)
  Receive Date: 20230608
  Receipt Date: 20230608
  Transmission Date: 20230722
  Serious: No
  Sender: FDA-Public Use
  Company Number: US-DENDREON PHARMACEUTICAL LLC-2023DEN000108

PATIENT

DRUGS (2)
  1. PROVENGE [Suspect]
     Active Substance: SIPULEUCEL-T
     Indication: Prostate cancer metastatic
     Dosage: DOSE 1
     Route: 042
     Dates: start: 20230310, end: 20230310
  2. PROVENGE [Suspect]
     Active Substance: SIPULEUCEL-T
     Dosage: DOSE 2
     Route: 042
     Dates: start: 20230407, end: 20230407

REACTIONS (5)
  - Muscle spasms [Unknown]
  - Muscle spasms [Unknown]
  - Myalgia [Unknown]
  - Arthritis [Unknown]
  - Rash [Unknown]

NARRATIVE: CASE EVENT DATE: 20230401
